FAERS Safety Report 19419024 (Version 2)
Quarter: 2021Q3

REPORT INFORMATION
  Report Type: Spontaneous
  Country: US (occurrence: US)
  Receive Date: 20210615
  Receipt Date: 20210930
  Transmission Date: 20211014
  Serious: No
  Sender: FDA-Public Use
  Company Number: US-PFIZER INC-2021299595

PATIENT
  Age: 54 Year
  Sex: Female
  Weight: 58.97 kg

DRUGS (2)
  1. INLYTA [Suspect]
     Active Substance: AXITINIB
     Dosage: 5 MG, 2X/DAY (5MG 1 TABLET BY MOUTH IN THE MORNING AND 1 TABLET IN THE EVENING)
     Route: 048
     Dates: start: 2020
  2. INLYTA [Suspect]
     Active Substance: AXITINIB
     Indication: RENAL CANCER
     Dosage: 6 MG, 2X/DAY (6MG 1 TABLET BY MOUTH TWICE A DAY)
     Route: 048
     Dates: start: 201711, end: 2020

REACTIONS (1)
  - Haemoglobin increased [Recovering/Resolving]

NARRATIVE: CASE EVENT DATE: 2020
